FAERS Safety Report 4933020-9 (Version None)
Quarter: 2006Q1

REPORT INFORMATION
  Report Type: 
  Country: None (occurrence: None)
  Receive Date: 20060301
  Receipt Date: 20060217
  Transmission Date: 20060701
  Serious: Yes (Disabling, Other)
  Sender: FDA-Public Use
  Company Number: 2006025009

PATIENT
  Age: 50 Year
  Sex: Female
  Weight: 92.9874 kg

DRUGS (11)
  1. ZYRTEC [Suspect]
     Indication: DRUG HYPERSENSITIVITY
     Dosage: 10 MG (10 MG, 1 IN 1 D), ORAL
     Route: 048
     Dates: start: 19920101
  2. ZYRTEC [Suspect]
     Indication: FOOD ALLERGY
     Dosage: 10 MG (10 MG, 1 IN 1 D), ORAL
     Route: 048
     Dates: start: 19920101
  3. ZYRTEC [Suspect]
     Indication: URTICARIA
     Dosage: 10 MG (10 MG, 1 IN 1 D), ORAL
     Route: 048
     Dates: start: 19920101
  4. FLONASE [Concomitant]
  5. PROZAC [Concomitant]
  6. METHADOSE (METHADONE HYDROCHLORIDE) [Concomitant]
  7. NAPROXEN [Concomitant]
  8. KLONOPIN [Concomitant]
  9. IMITREX [Concomitant]
  10. FLEXERIL [Concomitant]
  11. ALL OTHER THERAPEUTIC PRODUCTS [Concomitant]

REACTIONS (12)
  - CHRONIC SINUSITIS [None]
  - CONDITION AGGRAVATED [None]
  - DRUG INEFFECTIVE [None]
  - DYSMENORRHOEA [None]
  - DYSPHONIA [None]
  - HYPERSENSITIVITY [None]
  - MENOPAUSAL SYMPTOMS [None]
  - PAIN [None]
  - SCIATICA [None]
  - SINUS HEADACHE [None]
  - SPONDYLOLISTHESIS [None]
  - URTICARIA [None]
